FAERS Safety Report 9286585 (Version 2)
Quarter: 2013Q3

REPORT INFORMATION
  Report Type: Spontaneous
  Country: DE (occurrence: DE)
  Receive Date: 20130513
  Receipt Date: 20130723
  Transmission Date: 20140515
  Serious: Yes (Hospitalization, Other)
  Sender: FDA-Public Use
  Company Number: DE-WATSON-2013-08743

PATIENT
  Age: 21 Year
  Sex: Male

DRUGS (3)
  1. SERTRALINE HYDROCHLORIDE (UNKNOWN) [Suspect]
     Indication: PRODUCT USED FOR UNKNOWN INDICATION
     Dosage: 100 MG, DAILY
     Route: 048
     Dates: start: 20130425
  2. QUETIAPINE (UNKNOWN) [Suspect]
     Indication: PRODUCT USED FOR UNKNOWN INDICATION
     Dosage: 100 MG AND 25 MG DAILY
     Route: 048
     Dates: start: 20130425
  3. QUETIAPINE (UNKNOWN) [Suspect]
     Dosage: 600 MG, DAILY
     Route: 048
     Dates: start: 20130425

REACTIONS (10)
  - Sopor [Unknown]
  - Coma [Unknown]
  - Hypotonia [Unknown]
  - Tachycardia [Unknown]
  - Cardiovascular insufficiency [Unknown]
  - Suicide attempt [Unknown]
  - Intentional overdose [Unknown]
  - Overdose [Unknown]
  - Electrocardiogram QT prolonged [Unknown]
  - Blood creatine phosphokinase increased [Unknown]
